FAERS Safety Report 7162644-6 (Version None)
Quarter: 2010Q4

REPORT INFORMATION
  Report Type: 
  Country: None (occurrence: None)
  Receive Date: 20101215
  Receipt Date: 20101210
  Transmission Date: 20110411
  Serious: Yes (Hospitalization, Disabling, Other)
  Sender: FDA-Public Use
  Company Number: US-PFIZER INC-2010126724

PATIENT
  Sex: Male

DRUGS (2)
  1. CHANTIX [Suspect]
     Indication: SMOKING CESSATION THERAPY
     Dosage: 0.5/1.0 MG
     Dates: start: 20090821, end: 20091008
  2. METFORMIN [Concomitant]
     Indication: DIABETES MELLITUS
     Dosage: UNK
     Dates: start: 20080801

REACTIONS (11)
  - BACK PAIN [None]
  - COGNITIVE DISORDER [None]
  - DEPRESSION [None]
  - EMOTIONAL DISTRESS [None]
  - HYPOAESTHESIA [None]
  - IMPAIRED DRIVING ABILITY [None]
  - INTERVERTEBRAL DISC PROTRUSION [None]
  - LIGAMENT INJURY [None]
  - LOSS OF CONSCIOUSNESS [None]
  - SPINAL COLUMN STENOSIS [None]
  - SPINAL CORD INJURY [None]
